FAERS Safety Report 10101927 (Version 1)
Quarter: 2014Q2

REPORT INFORMATION
  Report Type: Spontaneous
  Country: CH (occurrence: CH)
  Receive Date: 20140424
  Receipt Date: 20140424
  Transmission Date: 20141212
  Serious: Yes (Hospitalization)
  Sender: FDA-Public Use
  Company Number: CH-EISAI INC-E2007-01642-SPO-CH

PATIENT
  Age: 30 Year
  Sex: Male
  Weight: 78 kg

DRUGS (13)
  1. FYCOMPA (PERAMPANEL) [Suspect]
     Indication: GENERALISED TONIC-CLONIC SEIZURE
     Route: 048
     Dates: start: 20130619, end: 20130702
  2. FYCOMPA (PERAMPANEL) [Interacting]
     Route: 048
     Dates: start: 20130703, end: 20130716
  3. FYCOMPA (PERAMPANEL) [Interacting]
     Route: 048
     Dates: start: 20130717, end: 20130730
  4. FYCOMPA (PERAMPANEL) [Interacting]
     Route: 048
     Dates: start: 20130731, end: 20130815
  5. FYCOMPA (PERAMPANEL) [Interacting]
     Route: 065
     Dates: start: 20130816, end: 20130818
  6. FYCOMPA (PERAMPANEL) [Interacting]
     Dosage: GRADUALLY WITHDRAWN (DOSES UNSPECIFIED)
     Route: 048
     Dates: start: 20130819, end: 201308
  7. INOVELON [Interacting]
     Indication: GENERALISED TONIC-CLONIC SEIZURE
     Dosage: 2200 MG/DAY
     Route: 048
     Dates: end: 20130819
  8. INOVELON [Interacting]
     Dosage: 4000 MG/DAY
     Route: 048
     Dates: start: 20130820, end: 20130826
  9. INOVELON [Interacting]
     Dosage: 2200 MG/DAY
     Route: 048
     Dates: start: 20130827
  10. APHENYLBARBIT [Interacting]
     Indication: GENERALISED TONIC-CLONIC SEIZURE
     Route: 048
     Dates: end: 20130812
  11. APHENYLBARBIT [Interacting]
     Route: 048
     Dates: start: 20130813, end: 20130815
  12. APHENYLBARBIT [Interacting]
     Route: 048
     Dates: start: 20130821, end: 20130829
  13. APHENYLBARBIT [Interacting]
     Route: 048
     Dates: start: 20130830

REACTIONS (4)
  - Status epilepticus [Recovered/Resolved]
  - Drug interaction [Unknown]
  - Drug level decreased [Recovered/Resolved]
  - Prescribed overdose [Recovered/Resolved]
